FAERS Safety Report 9553514 (Version 1)
Quarter: 2013Q3

REPORT INFORMATION
  Report Type: Spontaneous
  Country: US (occurrence: US)
  Receive Date: 20130925
  Receipt Date: 20130925
  Transmission Date: 20140515
  Serious: No
  Sender: FDA-Public Use
  Company Number: US-PFIZER INC-2013271588

PATIENT
  Sex: Female
  Weight: 63.49 kg

DRUGS (1)
  1. ADVIL [Suspect]
     Indication: DYSMENORRHOEA
     Dosage: 2400 MG (12 TABLETS OF 200MG), UNK
     Route: 048

REACTIONS (2)
  - Overdose [Unknown]
  - Somnolence [Unknown]
